FAERS Safety Report 4444784-5 (Version None)
Quarter: 2004Q3

REPORT INFORMATION
  Report Type: 
  Country: None (occurrence: None)
  Receive Date: 20040907
  Receipt Date: 20040907
  Transmission Date: 20050211
  Serious: No
  Sender: FDA-Public Use
  Company Number: None

PATIENT

DRUGS (3)
  1. UROXATRAL [Suspect]
     Dosage: TABLET, EXTENDED RELEASE
  2. OXYTROL [Suspect]
     Dosage: FILM, EXTENDED RELEASE
  3. ROXANAL [Suspect]
     Dosage: SOLUTION

REACTIONS (1)
  - MEDICATION ERROR [None]
